FAERS Safety Report 6274859-X (Version None)
Quarter: 2009Q3

REPORT INFORMATION
  Report Type: 
  Country: None (occurrence: None)
  Receive Date: 20090721
  Receipt Date: 20090715
  Transmission Date: 20100115
  Serious: Yes (Other)
  Sender: FDA-Public Use
  Company Number: IT-BRISTOL-MYERS SQUIBB COMPANY-14703557

PATIENT
  Age: 40 Year
  Sex: Female

DRUGS (3)
  1. ABILIFY [Suspect]
     Indication: BIPOLAR DISORDER
     Dosage: STARTED 10MG,FEB09;15MG,MAR09;REDUCED 10MG,29APR09;5MG,13MAY09,1JUL09 DRUG SUSPENDED.
     Route: 048
     Dates: start: 20090201, end: 20090701
  2. EFFEXOR [Suspect]
     Dates: start: 20090201
  3. LORAZEPAM [Suspect]
     Dosage: THREE HALF TABLET/D
     Dates: start: 20090201

REACTIONS (3)
  - DYSKINESIA [None]
  - HYPOAESTHESIA FACIAL [None]
  - SPEECH DISORDER [None]
